FAERS Safety Report 5652093-1 (Version None)
Quarter: 2008Q1

REPORT INFORMATION
  Report Type: 
  Country: None (occurrence: None)
  Receive Date: 20080131
  Receipt Date: 20071028
  Transmission Date: 20080703
  Serious: No
  Sender: FDA-Public Use
  Company Number: US200710007063

PATIENT
  Age: 73 Year
  Sex: Female

DRUGS (5)
  1. BYETTA [Suspect]
     Indication: TYPE 2 DIABETES MELLITUS
     Dosage: 5 UG, 2/D, SUBCUTANEOUS ;10 UG, 2/D, SUBCUTANEOUS
     Route: 058
     Dates: start: 20070401, end: 20070501
  2. BYETTA [Suspect]
     Indication: TYPE 2 DIABETES MELLITUS
     Dosage: 5 UG, 2/D, SUBCUTANEOUS ;10 UG, 2/D, SUBCUTANEOUS
     Route: 058
     Dates: start: 20070501, end: 20071001
  3. METFORMIN HCL [Concomitant]
  4. HUMULIN N [Concomitant]
  5. INSULIN (INSULIN) [Concomitant]

REACTIONS (5)
  - BLOOD GLUCOSE DECREASED [None]
  - HYPERHIDROSIS [None]
  - PALPITATIONS [None]
  - TREMOR [None]
  - WEIGHT DECREASED [None]
